FAERS Safety Report 21903913 (Version 1)
Quarter: 2023Q1

REPORT INFORMATION
  Report Type: Report from Study
  Country: FR (occurrence: FR)
  Receive Date: 20230124
  Receipt Date: 20230124
  Transmission Date: 20230418
  Serious: Yes (Other)
  Sender: FDA-Public Use
  Company Number: FR-VIIV HEALTHCARE LIMITED-FR2021EME215075

PATIENT

DRUGS (15)
  1. DOLUTEGRAVIR SODIUM\LAMIVUDINE [Suspect]
     Active Substance: DOLUTEGRAVIR SODIUM\LAMIVUDINE
     Indication: HIV infection
     Dosage: 1 CP, QD
     Route: 048
     Dates: start: 20210408
  2. DOLUTEGRAVIR SODIUM\LAMIVUDINE [Suspect]
     Active Substance: DOLUTEGRAVIR SODIUM\LAMIVUDINE
     Dosage: 50/300 MG
     Route: 048
     Dates: start: 20210422
  3. INSPRA [Suspect]
     Active Substance: EPLERENONE
     Indication: Cardiac failure
     Dosage: 25 MG, QD
     Route: 048
     Dates: start: 20220127
  4. VALSARTAN [Suspect]
     Active Substance: VALSARTAN
     Indication: Cardiac failure
     Dosage: 80 MG, QD
     Route: 048
     Dates: start: 2021
  5. EZETIMIBE\ROSUVASTATIN [Suspect]
     Active Substance: EZETIMIBE\ROSUVASTATIN
     Indication: Dyslipidaemia
     Dosage: 20 MG, QD
     Route: 048
     Dates: start: 20210902
  6. ROSUVASTATIN [Concomitant]
     Active Substance: ROSUVASTATIN
     Indication: Dyslipidaemia
     Dosage: 10 MG, QD
     Route: 048
     Dates: start: 20210212
  7. ROSUVASTATIN [Concomitant]
     Active Substance: ROSUVASTATIN
     Dosage: 10 MG, QD
     Route: 048
     Dates: start: 20210422, end: 20210602
  8. ROSUVASTATIN [Concomitant]
     Active Substance: ROSUVASTATIN
     Dosage: 20 MG, QD
     Route: 048
     Dates: start: 20210603, end: 20210901
  9. KIVEXA (ABACAVIR/LAMIVUDINE) [Concomitant]
     Indication: HIV infection
     Dosage: UNK
     Dates: start: 1996
  10. KIVEXA (ABACAVIR/LAMIVUDINE) [Concomitant]
     Dosage: 600MG/300MG
     Dates: start: 20150521
  11. 3TC (LAMIVUDINE) [Concomitant]
     Indication: HIV infection
     Dosage: UNK
     Dates: start: 1996
  12. VIRAMUNE [Concomitant]
     Active Substance: NEVIRAPINE
     Indication: HIV infection
     Dosage: UNK
     Dates: start: 1996
  13. VIRAMUNE [Concomitant]
     Active Substance: NEVIRAPINE
     Dosage: 200 MG (CPR 14)
     Dates: start: 19990215
  14. CRIXIVAN (INDINAVIR) [Concomitant]
     Indication: HIV infection
     Dosage: UNK
     Dates: start: 1996
  15. LAMIVUDINE\NEVIRAPINE\ZIDOVUDINE [Concomitant]
     Active Substance: LAMIVUDINE\NEVIRAPINE\ZIDOVUDINE

REACTIONS (2)
  - Renal failure [Not Recovered/Not Resolved]
  - Diarrhoea [Not Recovered/Not Resolved]

NARRATIVE: CASE EVENT DATE: 20210601
